FAERS Safety Report 12632227 (Version 2)
Quarter: 2016Q3

REPORT INFORMATION
  Report Type: Spontaneous
  Country: US (occurrence: US)
  Receive Date: 20160808
  Receipt Date: 20160808
  Transmission Date: 20161109
  Serious: No
  Sender: FDA-Public Use
  Company Number: US-BEH-2016062213

PATIENT
  Sex: Female
  Weight: 90 kg

DRUGS (48)
  1. VIBRAMYCIN [Concomitant]
     Active Substance: DOXYCYCLINE
  2. MUCINEX [Concomitant]
     Active Substance: GUAIFENESIN
  3. XANAX [Concomitant]
     Active Substance: ALPRAZOLAM
  4. FLONASE [Concomitant]
     Active Substance: FLUTICASONE PROPIONATE
  5. AMOXICILLIN. [Concomitant]
     Active Substance: AMOXICILLIN
  6. COUMADIN [Concomitant]
     Active Substance: WARFARIN SODIUM
  7. WOMENS DAILY MULTIVITAMIN [Concomitant]
  8. AMBIEN [Concomitant]
     Active Substance: ZOLPIDEM TARTRATE
  9. VICODIN [Concomitant]
     Active Substance: ACETAMINOPHEN\HYDROCODONE BITARTRATE
  10. MULTIVITAMIN [Concomitant]
     Active Substance: VITAMINS
  11. PROAIR HFA [Concomitant]
     Active Substance: ALBUTEROL SULFATE
  12. PREDNISONE. [Concomitant]
     Active Substance: PREDNISONE
  13. EPIPEN [Concomitant]
     Active Substance: EPINEPHRINE
  14. NIGHTIME SLEEP [Concomitant]
  15. BENEFIBER [Concomitant]
     Active Substance: STARCH, WHEAT
  16. HIZENTRA [Suspect]
     Active Substance: HUMAN IMMUNOGLOBULIN G
     Indication: IMMUNODEFICIENCY COMMON VARIABLE
     Route: 058
     Dates: start: 20141212
  17. SINGULAIR [Concomitant]
     Active Substance: MONTELUKAST SODIUM
  18. LIPITOR [Concomitant]
     Active Substance: ATORVASTATIN CALCIUM
  19. LISINOPRIL. [Concomitant]
     Active Substance: LISINOPRIL
  20. VITAMIN D [Concomitant]
     Active Substance: CHOLECALCIFEROL
  21. BENADRYL [Concomitant]
     Active Substance: DIPHENHYDRAMINE HYDROCHLORIDE
  22. TRAMADOL. [Concomitant]
     Active Substance: TRAMADOL
  23. SYMBICORT [Concomitant]
     Active Substance: BUDESONIDE\FORMOTEROL FUMARATE DIHYDRATE
  24. RESTORIL [Concomitant]
     Active Substance: TEMAZEPAM
  25. MIRALAX [Concomitant]
     Active Substance: POLYETHYLENE GLYCOL 3350
  26. TEA [Concomitant]
     Active Substance: TEA LEAF
  27. CALCIUM [Concomitant]
     Active Substance: CALCIUM
  28. PHRENILIN [Concomitant]
     Active Substance: ACETAMINOPHEN\BUTALBITAL
  29. XOPENEX [Concomitant]
     Active Substance: LEVALBUTEROL HYDROCHLORIDE
  30. RIZATRIPTAN. [Concomitant]
     Active Substance: RIZATRIPTAN
  31. VALTREX [Concomitant]
     Active Substance: VALACYCLOVIR HYDROCHLORIDE
  32. FEXFENADINE [Concomitant]
  33. LEVALBUTEROL. [Concomitant]
     Active Substance: LEVALBUTEROL
  34. MIRAPEX [Concomitant]
     Active Substance: PRAMIPEXOLE DIHYDROCHLORIDE
  35. HYDROXYZINE [Concomitant]
     Active Substance: HYDROXYZINE\HYDROXYZINE HYDROCHLORIDE
  36. TYLENOL [Concomitant]
     Active Substance: ACETAMINOPHEN
  37. DOXYCYCLINE. [Concomitant]
     Active Substance: DOXYCYCLINE
  38. VALTREX [Concomitant]
     Active Substance: VALACYCLOVIR HYDROCHLORIDE
  39. CARDIZEM [Concomitant]
     Active Substance: DILTIAZEM HYDROCHLORIDE
  40. ZOCOR [Concomitant]
     Active Substance: SIMVASTATIN
  41. POTASSIUM [Concomitant]
     Active Substance: POTASSIUM
  42. PANTOPRAZOLE [Concomitant]
     Active Substance: PANTOPRAZOLE SODIUM
  43. LASIX [Concomitant]
     Active Substance: FUROSEMIDE
  44. COLACE [Concomitant]
     Active Substance: DOCUSATE SODIUM
  45. PERCOCET [Concomitant]
     Active Substance: ACETAMINOPHEN\OXYCODONE HYDROCHLORIDE
  46. TUSSIONEX PENNKINETIC [Concomitant]
     Active Substance: CHLORPHENIRAMINE\HYDROCODONE
  47. CARDIZEM [Concomitant]
     Active Substance: DILTIAZEM HYDROCHLORIDE
  48. GABPENTIN [Concomitant]

REACTIONS (3)
  - Bronchitis [Unknown]
  - Myalgia [Unknown]
  - Arthralgia [Unknown]
